FAERS Safety Report 7310513-0 (Version None)
Quarter: 2011Q1

REPORT INFORMATION
  Report Type: 
  Country: None (occurrence: None)
  Receive Date: 20110224
  Receipt Date: 20101118
  Transmission Date: 20110831
  Serious: No
  Sender: FDA-Public Use
  Company Number: US-BRISTOL-MYERS SQUIBB COMPANY-15388739

PATIENT
  Age: 61 Year
  Sex: Female

DRUGS (8)
  1. NORTRIPTYLINE [Concomitant]
  2. MIRAPEX [Concomitant]
  3. EFFEXOR XR [Concomitant]
  4. HUMALOG [Concomitant]
     Dosage: 1DF=75/25 UNIT NOT SPECIFIED
  5. ZEGERID [Concomitant]
  6. CLONAZEPAM [Concomitant]
  7. OXYCODONE [Concomitant]
  8. GLUCOPHAGE [Suspect]
     Indication: TYPE 2 DIABETES MELLITUS
     Dosage: 500MG QD 18DAYS AGO.INCREASED TO 500MG BID ON 11NOV10.
     Dates: start: 20101001

REACTIONS (2)
  - DIARRHOEA [None]
  - MUSCLE SPASMS [None]
